FAERS Safety Report 10759150 (Version 2)
Quarter: 2015Q2

REPORT INFORMATION
  Report Type: Spontaneous
  Country: IE (occurrence: IE)
  Receive Date: 20150203
  Receipt Date: 20150420
  Transmission Date: 20150821
  Serious: Yes (Death, Hospitalization)
  Sender: FDA-Public Use
  Company Number: IE-PFIZER INC-2015042429

PATIENT
  Age: 68 Year
  Sex: Male

DRUGS (1)
  1. XALKORI [Suspect]
     Active Substance: CRIZOTINIB
     Indication: COLORECTAL CANCER
     Dosage: 200 MG, 2X/DAY

REACTIONS (4)
  - Disease progression [Fatal]
  - Colorectal cancer [Fatal]
  - Ascites [Unknown]
  - Product use issue [Unknown]
